FAERS Safety Report 9604512 (Version 1)
Quarter: 2013Q4

REPORT INFORMATION
  Report Type: Report from Study
  Country: DE (occurrence: DE)
  Receive Date: 20131008
  Receipt Date: 20131008
  Transmission Date: 20140711
  Serious: Yes (Death)
  Sender: FDA-Public Use
  Company Number: DE-ASTELLAS-2013US010475

PATIENT
  Age: 72 Year
  Sex: Male

DRUGS (2)
  1. ERLOTINIB TABLET [Suspect]
     Indication: PANCREATIC CARCINOMA
     Dosage: 100 MG, UID/QD
     Route: 048
     Dates: start: 20130729, end: 201309
  2. GEMEDAC [Suspect]
     Indication: PANCREATIC CARCINOMA
     Dosage: 1680 MG, WEEKLY
     Route: 065
     Dates: start: 20130722, end: 20130923

REACTIONS (1)
  - General physical health deterioration [Fatal]
